FAERS Safety Report 15475573 (Version 5)
Quarter: 2019Q1

REPORT INFORMATION
  Report Type: Spontaneous
  Country: JP (occurrence: JP)
  Receive Date: 20181008
  Receipt Date: 20190304
  Transmission Date: 20190417
  Serious: Yes (Death, Life-Threatening, Hospitalization, Other)
  Sender: FDA-Public Use
  Company Number: JP-009507513-1806JPN002372J

PATIENT
  Age: 68 Year
  Sex: Male
  Weight: 54 kg

DRUGS (16)
  1. LOXOPROFEN [Suspect]
     Active Substance: LOXOPROFEN
     Indication: PAIN
     Dosage: 60 MG, TID
     Route: 048
     Dates: start: 20180604, end: 20180620
  2. TALION (BEPOTASTINE BESYLATE) [Suspect]
     Active Substance: BEPOTASTINE BESILATE
     Indication: URTICARIA
     Dosage: 10 MG, BID
     Route: 048
     Dates: start: 20180609, end: 20180618
  3. SULBACILLIN [Suspect]
     Active Substance: AMPICILLIN SODIUM\SULBACTAM SODIUM
     Indication: PNEUMONIA BACTERIAL
     Dosage: 3 G, TID
     Route: 042
     Dates: start: 20180605, end: 20180614
  4. OXINORM (OXYCODONE HYDROCHLORIDE) [Suspect]
     Active Substance: OXYCODONE HYDROCHLORIDE
     Indication: PAIN
     Dosage: 7.5 MG, PRN
     Route: 048
     Dates: start: 20180618, end: 20180618
  5. DOMPERIDONE [Concomitant]
     Active Substance: DOMPERIDONE
     Route: 065
  6. BELSOMRA [Suspect]
     Active Substance: SUVOREXANT
     Indication: INSOMNIA
     Dosage: 15 MILLIGRAM, PRN
     Route: 048
     Dates: start: 20180613, end: 20180618
  7. LANSOPRAZOLE. [Suspect]
     Active Substance: LANSOPRAZOLE
     Indication: CHRONIC GASTRITIS
     Dosage: 15 MG, QD
     Route: 048
     Dates: start: 20180605, end: 20180620
  8. MORPHINE HYDROCHLORIDE [Suspect]
     Active Substance: MORPHINE HYDROCHLORIDE
     Indication: PAIN
     Dosage: UNK, PRN
     Route: 058
     Dates: start: 20180603, end: 20180617
  9. PREDONINE [Suspect]
     Active Substance: PREDNISOLONE
     Indication: INTERSTITIAL LUNG DISEASE
     Dosage: 60 MG, UNK
     Route: 042
     Dates: start: 20180611, end: 20180611
  10. BAKTAR [Concomitant]
     Active Substance: SULFAMETHOXAZOLE\TRIMETHOPRIM
     Route: 065
  11. NOVAMIN (PROCHLORPERAZINE MALEATE) [Suspect]
     Active Substance: PROCHLORPERAZINE MALEATE
     Indication: NAUSEA
     Dosage: 5 MG, TID
     Route: 048
     Dates: start: 20180606, end: 20180620
  12. CALONAL [Suspect]
     Active Substance: ACETAMINOPHEN
     Indication: PAIN
     Dosage: 500 MG, TID
     Route: 048
     Dates: start: 20180608, end: 20180619
  13. PREDONINE [Suspect]
     Active Substance: PREDNISOLONE
     Indication: INTERSTITIAL LUNG DISEASE
     Dosage: UNK
     Route: 048
     Dates: start: 20180612, end: 20180618
  14. KEYTRUDA [Suspect]
     Active Substance: PEMBROLIZUMAB
     Indication: LUNG ADENOCARCINOMA
     Dosage: 200 MILLIGRAM, QW
     Route: 041
     Dates: start: 20180606, end: 20180606
  15. OXYCONTIN [Suspect]
     Active Substance: OXYCODONE HYDROCHLORIDE
     Indication: PAIN
     Dosage: 20 MG, BID
     Route: 048
     Dates: start: 20180618, end: 20180619
  16. FOLIAMIN [Concomitant]
     Active Substance: FOLIC ACID
     Route: 065

REACTIONS (5)
  - Enterococcal bacteraemia [Unknown]
  - Multiple organ dysfunction syndrome [Unknown]
  - Pneumonia viral [Unknown]
  - Interstitial lung disease [Recovered/Resolved]
  - Myocarditis [Fatal]

NARRATIVE: CASE EVENT DATE: 20180611
